FAERS Safety Report 7912656-7 (Version None)
Quarter: 2011Q4

REPORT INFORMATION
  Report Type: 
  Country: None (occurrence: None)
  Receive Date: 20111114
  Receipt Date: 20111103
  Transmission Date: 20120403
  Serious: Yes (Other)
  Sender: FDA-Public Use
  Company Number: DE-CUBIST-2011S1000775

PATIENT
  Age: 51 Year
  Sex: Male
  Weight: 130 kg

DRUGS (2)
  1. MEROPENEM [Concomitant]
     Indication: PRODUCT USED FOR UNKNOWN INDICATION
  2. CUBICIN [Suspect]
     Indication: POST PROCEDURAL INFECTION
     Dates: start: 20110222, end: 20110228

REACTIONS (8)
  - HYPERSENSITIVITY [None]
  - MENTAL STATUS CHANGES [None]
  - BODY TEMPERATURE FLUCTUATION [None]
  - HEART RATE INCREASED [None]
  - HYPOTENSION [None]
  - BLOOD CREATININE INCREASED [None]
  - HEPATIC FUNCTION ABNORMAL [None]
  - COAGULOPATHY [None]
